FAERS Safety Report 6285634-4 (Version None)
Quarter: 2009Q3

REPORT INFORMATION
  Report Type: 
  Country: None (occurrence: None)
  Receive Date: 20090724
  Receipt Date: 20090507
  Transmission Date: 20100115
  Serious: Yes (Hospitalization)
  Sender: FDA-Public Use
  Company Number: ADE# 09-354DPR

PATIENT
  Sex: Female

DRUGS (1)
  1. DIGOXIN           STRENGTH UNKNOWN [Suspect]

REACTIONS (2)
  - CARDIAC PACEMAKER INSERTION [None]
  - HYPOTENSION [None]
